FAERS Safety Report 7961069-0 (Version None)
Quarter: 2011Q4

REPORT INFORMATION
  Report Type: 
  Country: None (occurrence: None)
  Receive Date: 20111121
  Receipt Date: 20111010
  Transmission Date: 20120403
  Serious: Yes (Other)
  Sender: FDA-Public Use
  Company Number: 1000024566

PATIENT
  Age: 31 Year
  Sex: Female

DRUGS (4)
  1. VIIBRYD [Suspect]
     Indication: ANXIETY
     Dosage: 40 MG, (40 MG, 1 IN 1 D), ORAL
     Route: 048
     Dates: start: 20110101, end: 20111001
  2. SYNTHROID (LEVOTHYROXINE SODIUM) (LEVOTHYROXINE SODIUM) [Concomitant]
  3. VIIBRYD [Suspect]
     Indication: ANXIETY
     Dosage: 10 MG (10 MG, 1 IN 1 D), ORAL
     Route: 048
     Dates: start: 20110801, end: 20110101
  4. NUVARING (NUVARING) (NUVARING) [Concomitant]

REACTIONS (3)
  - MANIA [None]
  - IMPULSIVE BEHAVIOUR [None]
  - IRRITABILITY [None]
